FAERS Safety Report 18275328 (Version 1)
Quarter: 2020Q3

REPORT INFORMATION
  Report Type: Spontaneous
  Country: US (occurrence: US)
  Receive Date: 20200916
  Receipt Date: 20200916
  Transmission Date: 20201103
  Serious: Yes (Hospitalization)
  Sender: FDA-Public Use
  Company Number: US-VIFOR (INTERNATIONAL) INC.-VIT-2020-09444

PATIENT
  Age: 40 Year
  Sex: Female

DRUGS (1)
  1. VELTASSA [Suspect]
     Active Substance: PATIROMER
     Indication: HYPERKALAEMIA
     Route: 048
     Dates: start: 202001, end: 202009

REACTIONS (3)
  - Blindness [Unknown]
  - Sluggishness [Unknown]
  - Asthenia [Unknown]

NARRATIVE: CASE EVENT DATE: 20200908
